FAERS Safety Report 5740552-2 (Version None)
Quarter: 2008Q2

REPORT INFORMATION
  Report Type: 
  Country: None (occurrence: None)
  Receive Date: 20080516
  Receipt Date: 20080507
  Transmission Date: 20081010
  Serious: Yes (Congenital Anomaly, Other)
  Sender: FDA-Public Use
  Company Number: GB-ABBOTT-08P-167-0442241-00

PATIENT
  Sex: Male

DRUGS (1)
  1. VALPROIC ACID [Suspect]
     Indication: DRUG EXPOSURE DURING PREGNANCY
     Route: 064

REACTIONS (41)
  - ABNORMAL BEHAVIOUR [None]
  - ACTIVITIES OF DAILY LIVING IMPAIRED [None]
  - AGGRESSION [None]
  - ANOMALY OF EXTERNAL EAR CONGENITAL [None]
  - ASOCIAL BEHAVIOUR [None]
  - ASTHMA [None]
  - CLEFT LIP AND PALATE [None]
  - CLUMSINESS [None]
  - CONGENITAL FOOT MALFORMATION [None]
  - CONGENITAL HAIR DISORDER [None]
  - CONGENITAL NAIL DISORDER [None]
  - CONGENITAL NOSE MALFORMATION [None]
  - COORDINATION ABNORMAL [None]
  - DACRYOSTENOSIS ACQUIRED [None]
  - DISTURBANCE IN ATTENTION [None]
  - DRUG EXPOSURE DURING PREGNANCY [None]
  - DYSMORPHISM [None]
  - EAR INFECTION [None]
  - EAR MALFORMATION [None]
  - EMOTIONAL DISORDER [None]
  - EMOTIONAL DISTRESS [None]
  - FEBRILE CONVULSION [None]
  - FOETAL ANTICONVULSANT SYNDROME [None]
  - FOOT DEFORMITY [None]
  - HAEMANGIOMA [None]
  - HYPERTELORISM OF ORBIT [None]
  - ILL-DEFINED DISORDER [None]
  - ILLITERACY [None]
  - INGUINAL HERNIA [None]
  - INTENTIONAL SELF-INJURY [None]
  - LEARNING DISABILITY [None]
  - LEARNING DISORDER [None]
  - LIP DISORDER [None]
  - LOWER RESPIRATORY TRACT INFECTION [None]
  - PICA [None]
  - PREAURICULAR CYST [None]
  - RECTAL PROLAPSE [None]
  - SKULL MALFORMATION [None]
  - SLEEP DISORDER [None]
  - SPEECH DISORDER [None]
  - SPEECH DISORDER DEVELOPMENTAL [None]
